FAERS Safety Report 10593857 (Version 1)
Quarter: 2014Q4

REPORT INFORMATION
  Report Type: Spontaneous
  Country: DE (occurrence: DE)
  Receive Date: 20141119
  Receipt Date: 20141119
  Transmission Date: 20150529
  Serious: Yes (Other)
  Sender: FDA-Public Use
  Company Number: DE-TEVA-522513GER

PATIENT
  Age: 28 Year
  Sex: Female
  Weight: 50 kg

DRUGS (11)
  1. LORAZEPAM. [Suspect]
     Active Substance: LORAZEPAM
     Dosage: 2 MILLIGRAM DAILY;
     Route: 048
     Dates: start: 20130507, end: 20130515
  2. RISPERDAL [Suspect]
     Active Substance: RISPERIDONE
     Dosage: 3 MILLIGRAM DAILY;
     Route: 048
     Dates: start: 20130516, end: 20130516
  3. RISPERDAL [Suspect]
     Active Substance: RISPERIDONE
     Dosage: 3 MILLIGRAM DAILY;
     Route: 048
     Dates: start: 20130517, end: 20130523
  4. LORAZEPAM. [Suspect]
     Active Substance: LORAZEPAM
     Dosage: 1.5 MILLIGRAM DAILY;
     Route: 048
     Dates: start: 20130516, end: 20130523
  5. RISPERDAL [Suspect]
     Active Substance: RISPERIDONE
     Dosage: 1 MILLIGRAM DAILY;
     Route: 048
     Dates: start: 20130618, end: 20130619
  6. RISPERDAL [Suspect]
     Active Substance: RISPERIDONE
     Dosage: 4 MILLIGRAM DAILY;
     Route: 048
     Dates: start: 20130515, end: 20130515
  7. RISPERDAL [Suspect]
     Active Substance: RISPERIDONE
     Dosage: 2 MILLIGRAM DAILY;
     Route: 048
     Dates: start: 20130524, end: 20130606
  8. RISPERDAL [Suspect]
     Active Substance: RISPERIDONE
     Dosage: 1.5 MILLIGRAM DAILY;
     Route: 048
     Dates: start: 20130607, end: 20130617
  9. LORAZEPAM. [Suspect]
     Active Substance: LORAZEPAM
     Dosage: 2 MILLIGRAM DAILY;
     Route: 048
     Dates: start: 20130524, end: 20130603
  10. LORAZEPAM. [Suspect]
     Active Substance: LORAZEPAM
     Dosage: 2 MILLIGRAM DAILY; 2-0 MG
     Route: 048
     Dates: start: 20130604, end: 20130628
  11. RISPERDAL [Suspect]
     Active Substance: RISPERIDONE
     Dosage: 20 MILLIGRAM DAILY;
     Route: 048
     Dates: start: 20130507, end: 20130514

REACTIONS (1)
  - Circulatory collapse [Recovered/Resolved]

NARRATIVE: CASE EVENT DATE: 20130517
